FAERS Safety Report 5632690-X (Version None)
Quarter: 2008Q1

REPORT INFORMATION
  Report Type: 
  Country: None (occurrence: None)
  Receive Date: 20080220
  Receipt Date: 20080208
  Transmission Date: 20080703
  Serious: Yes (Hospitalization, Other)
  Sender: FDA-Public Use
  Company Number: US-PFIZER INC-2008014375

PATIENT
  Sex: Male
  Weight: 83.9 kg

DRUGS (4)
  1. LITHIUM CARBONATE [Suspect]
     Indication: BIPOLAR I DISORDER
     Route: 048
     Dates: start: 20060101, end: 20070101
  2. CHANTIX [Interacting]
     Indication: SMOKING CESSATION THERAPY
     Route: 048
  3. VITAMIN CAP [Concomitant]
  4. SEROQUEL [Concomitant]

REACTIONS (11)
  - ABNORMAL DREAMS [None]
  - ANOREXIA [None]
  - ANTIPSYCHOTIC DRUG LEVEL ABOVE THERAPEUTIC [None]
  - DIARRHOEA [None]
  - DRUG INTERACTION [None]
  - INSOMNIA [None]
  - MALAISE [None]
  - PHAGOPHOBIA [None]
  - TREMOR [None]
  - VOMITING [None]
  - WEIGHT DECREASED [None]
